FAERS Safety Report 13893906 (Version 1)
Quarter: 2017Q3

REPORT INFORMATION
  Report Type: Spontaneous
  Country: US (occurrence: US)
  Receive Date: 20170822
  Receipt Date: 20170822
  Transmission Date: 20171127
  Serious: No
  Sender: FDA-Public Use
  Company Number: US-ENDO PHARMACEUTICALS INC-2017-003679

PATIENT
  Sex: Male
  Weight: 99.77 kg

DRUGS (2)
  1. TESTOPEL [Suspect]
     Active Substance: TESTOSTERONE
     Indication: PRODUCT USED FOR UNKNOWN INDICATION
     Dosage: 6 PELLETS EVERY THREE MONTHS
     Route: 065
     Dates: start: 2015
  2. HORMONES [Concomitant]
     Active Substance: UNSPECIFIED INGREDIENT
     Indication: HYPOPITUITARISM

REACTIONS (4)
  - General physical health deterioration [Unknown]
  - Prescribed overdose [Unknown]
  - Asthenia [Unknown]
  - Infrequent bowel movements [Unknown]
